FAERS Safety Report 14544261 (Version 8)
Quarter: 2019Q2

REPORT INFORMATION
  Report Type: Report from Study
  Country: DE (occurrence: DE)
  Receive Date: 20180216
  Receipt Date: 20190530
  Transmission Date: 20190711
  Serious: Yes (Hospitalization, Other)
  Sender: FDA-Public Use
  Company Number: DE-BRISTOL-MYERS SQUIBB COMPANY-BMS-2017-121037

PATIENT
  Age: 68 Year
  Sex: Male
  Weight: 71 kg

DRUGS (13)
  1. RAMIPRIL. [Concomitant]
     Active Substance: RAMIPRIL
     Indication: HYPERTENSION
     Dosage: 2.5 MG, UNK
     Route: 048
  2. NIVOLUMAB [Suspect]
     Active Substance: NIVOLUMAB
     Indication: PRODUCT USED FOR UNKNOWN INDICATION
     Dosage: 70 UNIT, UNK
     Route: 065
     Dates: start: 20170904, end: 20170904
  3. IPILIMUMAB [Suspect]
     Active Substance: IPILIMUMAB
     Indication: MALIGNANT MELANOMA
     Dosage: 215 UNIT, Q3WK
     Route: 065
     Dates: start: 20170814, end: 20170814
  4. ATORVASTATIN [Concomitant]
     Active Substance: ATORVASTATIN
     Indication: HYPERTENSION
     Dosage: 20 MG, QD
     Route: 048
  5. URBASON                            /00049601/ [Concomitant]
     Active Substance: METHYLPREDNISOLONE
     Indication: PRODUCT USED FOR UNKNOWN INDICATION
     Dosage: 72 MG, UNK
     Route: 042
     Dates: start: 20171008, end: 20171012
  6. DICLOFENAC [Concomitant]
     Active Substance: DICLOFENAC
     Indication: BACK PAIN
     Dosage: 50 MG, UNK
     Route: 048
     Dates: start: 20170907, end: 20170913
  7. NIVOLUMAB [Suspect]
     Active Substance: NIVOLUMAB
     Indication: MALIGNANT MELANOMA
     Dosage: 70 UNIT, Q3WK
     Route: 065
     Dates: start: 20170814, end: 20170814
  8. ACETYLSALICYLIC ACID [Concomitant]
     Active Substance: ASPIRIN
     Indication: HYPERTENSION
     Dosage: 100 MG, UNK
     Route: 048
  9. ADVANTAN MILK [Concomitant]
     Indication: PRODUCT USED FOR UNKNOWN INDICATION
     Dosage: UNK
     Route: 061
     Dates: start: 20180104, end: 20180122
  10. IPILIMUMAB [Suspect]
     Active Substance: IPILIMUMAB
     Indication: PRODUCT USED FOR UNKNOWN INDICATION
     Dosage: 215 UNIT, Q3WK
     Route: 065
     Dates: start: 20170904, end: 20170904
  11. PANTOPRAZOL [Concomitant]
     Active Substance: PANTOPRAZOLE SODIUM
     Indication: BACK PAIN
     Dosage: UNK, PRN
     Route: 048
     Dates: start: 20170908, end: 20170913
  12. MOVICOL [Concomitant]
     Active Substance: POLYETHYLENE GLYCOL 3350\POTASSIUM CHLORIDE\SODIUM BICARBONATE\SODIUM CHLORIDE
     Indication: PRODUCT USED FOR UNKNOWN INDICATION
     Dosage: 39.375 G, UNK
     Route: 048
     Dates: start: 20171014, end: 20171014
  13. MOVICOL [Concomitant]
     Active Substance: POLYETHYLENE GLYCOL 3350\POTASSIUM CHLORIDE\SODIUM BICARBONATE\SODIUM CHLORIDE
     Indication: PRODUCT USED FOR UNKNOWN INDICATION
     Dosage: 13.125 UNK, UNK
     Route: 048
     Dates: start: 20171015

REACTIONS (15)
  - Nausea [Unknown]
  - Hyponatraemia [Unknown]
  - Propionibacterium infection [Unknown]
  - Constipation [Unknown]
  - Stomatitis [Unknown]
  - Autoimmune colitis [Recovered/Resolved]
  - Urinary tract infection bacterial [Unknown]
  - Stomatococcal infection [Unknown]
  - Adverse event [Unknown]
  - General physical health deterioration [Unknown]
  - Neisseria infection [Unknown]
  - Streptococcal urinary tract infection [Unknown]
  - Hypocalcaemia [Unknown]
  - Device related sepsis [Unknown]
  - Vomiting [Unknown]

NARRATIVE: CASE EVENT DATE: 20170916
